FAERS Safety Report 19732350 (Version 1)
Quarter: 2021Q3

REPORT INFORMATION
  Report Type: Report from Study
  Country: IT (occurrence: IT)
  Receive Date: 20210822
  Receipt Date: 20210822
  Transmission Date: 20211014
  Serious: Yes (Hospitalization)
  Sender: FDA-Public Use
  Company Number: IT-TEVA-2021-IT-1943098

PATIENT
  Age: 17 Year
  Sex: Female

DRUGS (4)
  1. CARBOLITHIUM 150 MG CAPSULE RIGIDE [Suspect]
     Active Substance: LITHIUM CARBONATE
     Dosage: 8DF,ABUSE / MISUSE
     Route: 048
     Dates: start: 20210704, end: 20210704
  2. OLANZAPINE. [Suspect]
     Active Substance: OLANZAPINE
     Indication: CONVERSION DISORDER
     Dosage: 5DF,ABUSE / MISUSE
     Route: 048
     Dates: start: 20210704, end: 20210704
  3. CHLORPROMAZINE HYDROCHLORIDE. [Suspect]
     Active Substance: CHLORPROMAZINE HYDROCHLORIDE
     Indication: CONVERSION DISORDER
     Dosage: 100MG,ABUSE / MISUSE
     Route: 048
     Dates: start: 20210704, end: 20210704
  4. CARBOLITHIUM 150 MG CAPSULE RIGIDE [Suspect]
     Active Substance: LITHIUM CARBONATE
     Indication: CONVERSION DISORDER
     Dosage: 9DF,ABUSE / MISUSE
     Route: 048
     Dates: start: 20210704, end: 20210704

REACTIONS (4)
  - Drug abuse [Recovering/Resolving]
  - Hypokinesia [Recovering/Resolving]
  - Bradyphrenia [Recovering/Resolving]
  - Mutism [Recovering/Resolving]

NARRATIVE: CASE EVENT DATE: 20210704
